FAERS Safety Report 7958156-X (Version None)
Quarter: 2011Q4

REPORT INFORMATION
  Report Type: 
  Country: None (occurrence: None)
  Receive Date: 20111205
  Receipt Date: 20111123
  Transmission Date: 20120403
  Serious: Yes (Other)
  Sender: FDA-Public Use
  Company Number: US-SANOFI-AVENTIS-2011SA069245

PATIENT
  Age: 52 Year
  Sex: Male
  Weight: 95.25 kg

DRUGS (30)
  1. DIURETICS [Concomitant]
     Indication: FLUID RETENTION
  2. SIMVASTATIN [Concomitant]
  3. HYDRALAZINE HCL [Concomitant]
  4. HYDROXYZINE HYDROCHLORIDE [Concomitant]
     Dosage: 1 EVERY 6 HOURS AS NEEDED
  5. CYMBALTA [Concomitant]
  6. ALPRAZOLAM [Concomitant]
     Dosage: 2 A DAY
  7. ZYRTEC [Concomitant]
  8. OXYCODONE HCL [Concomitant]
     Dosage: 4 PER DAY
  9. NOVOLOG [Concomitant]
     Dosage: PER SLIDING SCALE
  10. CALCIUM [Concomitant]
  11. LANTUS [Suspect]
     Dosage: DOSE:95 UNIT(S)
     Route: 058
     Dates: start: 20040101
  12. LANTUS [Suspect]
     Indication: BLOOD GLUCOSE INCREASED
     Dosage: DOSE:95 UNIT(S)
     Route: 058
     Dates: start: 20040101
  13. ALL OTHER THERAPEUTIC PRODUCTS [Concomitant]
  14. FUROSEMIDE [Concomitant]
  15. GABAPENTIN [Concomitant]
  16. KLOR-CON [Concomitant]
     Dosage: TAKE 2 TAB
     Route: 048
  17. ONDANSETRON HYDROCHLORIDE [Concomitant]
     Dosage: 6 A DAY
  18. ANTIHYPERTENSIVES [Concomitant]
  19. CLONIDINE HYDROCHLORIDE [Concomitant]
  20. RENAGEL [Concomitant]
     Dosage: WITH MEALS
  21. FISH OIL [Concomitant]
     Dosage: 1 A DAY
  22. OXYMORPHONE HYDROCHLORIDE [Concomitant]
     Dosage: 2 A DAY AS NEEDED
  23. NITROGLYCERIN [Concomitant]
  24. GLYBURIDE [Concomitant]
     Dosage: TAKE TWO TABLETS TWICE A DAY
  25. COMBIVENT /JOR/ [Concomitant]
     Dosage: TAKE 2 PUFFS AS NEEDED
  26. CALCITRIOL [Concomitant]
  27. PROMETHAZINE [Concomitant]
     Dosage: 1 EVERY 6 HOURS AS NEEDED
  28. GENERAL NUTRIENTS [Concomitant]
     Dosage: 1 A DAY
  29. PROCHLORPERAZINE [Concomitant]
     Dosage: EVERY 8 HOURS AS NEEDED
  30. ATENOLOL [Concomitant]
     Dosage: 1 IN MORNING AND 2 IN EVENING

REACTIONS (1)
  - RENAL FAILURE [None]
